FAERS Safety Report 4982244-3 (Version None)
Quarter: 2006Q1

REPORT INFORMATION
  Report Type: 
  Country: None (occurrence: None)
  Receive Date: 20060227
  Receipt Date: 20050624
  Transmission Date: 20060701
  Serious: Yes (Hospitalization, Other)
  Sender: FDA-Public Use
  Company Number: WAES 0506USA03547

PATIENT
  Age: 66 Year
  Sex: Female

DRUGS (5)
  1. ZOCOR [Suspect]
     Indication: BLOOD CHOLESTEROL INCREASED
     Dosage: 40 MG/DAILY/PO
     Route: 048
     Dates: start: 20030701, end: 20050617
  2. ZOCOR [Suspect]
     Indication: DIABETES MELLITUS
     Dosage: 40 MG/DAILY/PO
     Route: 048
     Dates: start: 20030701, end: 20050617
  3. BENICAR [Concomitant]
  4. GLUCOPHAGE XR [Concomitant]
  5. ZIAC [Concomitant]

REACTIONS (2)
  - ASTHENIA [None]
  - RHABDOMYOLYSIS [None]
